FAERS Safety Report 9082852 (Version 1)
Quarter: 2013Q1

REPORT INFORMATION
  Report Type: Report from Study
  Country: US (occurrence: US)
  Receive Date: 20130131
  Receipt Date: 20130131
  Transmission Date: 20140127
  Serious: Yes (Hospitalization)
  Sender: FDA-Public Use
  Company Number: US-ABBOTT-12P-163-0989005-00

PATIENT
  Sex: Male
  Weight: 57.2 kg

DRUGS (3)
  1. HUMIRA [Suspect]
     Indication: CROHN^S DISEASE
     Route: 058
     Dates: start: 201201, end: 201201
  2. HUMIRA [Suspect]
     Route: 058
     Dates: start: 201201, end: 201201
  3. HUMIRA [Suspect]
     Route: 058
     Dates: start: 201202

REACTIONS (1)
  - Colostomy [Recovered/Resolved]
